FAERS Safety Report 23581804 (Version 2)
Quarter: 2024Q1

REPORT INFORMATION
  Report Type: Spontaneous
  Country: JP (occurrence: JP)
  Receive Date: 20240229
  Receipt Date: 20240307
  Transmission Date: 20240409
  Serious: Yes (Death, Hospitalization, Other)
  Sender: FDA-Public Use
  Company Number: JP-MSD-2402JPN003426J

PATIENT
  Age: 82 Year
  Sex: Female

DRUGS (1)
  1. KEYTRUDA [Suspect]
     Active Substance: PEMBROLIZUMAB
     Indication: Metastatic malignant melanoma
     Dosage: 200 MILLIGRAM, Q3W
     Route: 041
     Dates: start: 202106, end: 202301

REACTIONS (4)
  - Malignant neoplasm progression [Unknown]
  - Panniculitis [Recovering/Resolving]
  - Gastrointestinal haemorrhage [Fatal]
  - Drug eruption [Unknown]

NARRATIVE: CASE EVENT DATE: 20230101
